FAERS Safety Report 5130844-2 (Version None)
Quarter: 2006Q4

REPORT INFORMATION
  Report Type: 
  Country: None (occurrence: None)
  Receive Date: 20061017
  Receipt Date: 20061017
  Transmission Date: 20070319
  Serious: Yes (Hospitalization)
  Sender: FDA-Public Use
  Company Number: None

PATIENT
  Age: 53 Year
  Sex: Male
  Weight: 57.3 kg

DRUGS (1)
  1. MORPHINE [Suspect]
     Indication: OESOPHAGEAL CARCINOMA
     Dosage: 10MG Q4H PRN PO
     Route: 048

REACTIONS (15)
  - ABDOMINAL RIGIDITY [None]
  - ACCIDENTAL OVERDOSE [None]
  - ANAEMIA [None]
  - ASPIRATION [None]
  - DEHYDRATION [None]
  - DISTRACTIBILITY [None]
  - DRUG ABUSER [None]
  - GASTROINTESTINAL HAEMORRHAGE [None]
  - HYPOXIA [None]
  - LOSS OF CONSCIOUSNESS [None]
  - METASTASES TO LUNG [None]
  - OESOPHAGEAL MASS [None]
  - SINUS TACHYCARDIA [None]
  - STRESS [None]
  - TACHYCARDIA [None]
